FAERS Safety Report 13448797 (Version 1)
Quarter: 2017Q2

REPORT INFORMATION
  Report Type: Spontaneous
  Country: US (occurrence: US)
  Receive Date: 20170417
  Receipt Date: 20170417
  Transmission Date: 20170830
  Serious: No
  Sender: FDA-Public Use
  Company Number: US-SHIONOGI, INC-2016001023

PATIENT
  Sex: Female

DRUGS (4)
  1. OSPHENA [Suspect]
     Active Substance: OSPEMIFENE
     Indication: DYSPAREUNIA
     Dosage: 60 MG, QD
     Route: 048
     Dates: start: 201607
  2. LEVOTHYROXINE. [Concomitant]
     Active Substance: LEVOTHYROXINE
     Indication: THYROID DISORDER
     Dosage: 0.05 ?G, UNK
     Route: 065
  3. EVISTA [Suspect]
     Active Substance: RALOXIFENE HYDROCHLORIDE
     Indication: OSTEOPENIA
     Dosage: UNK
     Route: 065
     Dates: start: 201601
  4. TELMISARTAN AND HYDROCHLOROTHIAZIDE [Concomitant]
     Active Substance: HYDROCHLOROTHIAZIDE\TELMISARTAN
     Indication: HYPERTENSION
     Dosage: UNK
     Route: 065
     Dates: start: 1996

REACTIONS (7)
  - Anxiety [Recovered/Resolved]
  - Muscle spasms [Not Recovered/Not Resolved]
  - Hypersexuality [Recovered/Resolved]
  - Thinking abnormal [Recovered/Resolved]
  - Psychomotor hyperactivity [Recovered/Resolved]
  - Labelled drug-drug interaction medication error [Unknown]
  - Paraesthesia [Not Recovered/Not Resolved]

NARRATIVE: CASE EVENT DATE: 2016
